FAERS Safety Report 24585171 (Version 3)
Quarter: 2025Q4

REPORT INFORMATION
  Report Type: Spontaneous
  Country: US (occurrence: US)
  Receive Date: 20241106
  Receipt Date: 20251020
  Transmission Date: 20260118
  Serious: Yes (Other)
  Sender: PFIZER
  Company Number: US-PFIZER INC-202400293832

PATIENT
  Age: 68 Year
  Sex: Female

DRUGS (1)
  1. IBRANCE [Suspect]
     Active Substance: PALBOCICLIB
     Dosage: 1 TABLET FOR 21 DAYS OFF 7 DAYS

REACTIONS (4)
  - Malignant neoplasm progression [Unknown]
  - Aphonia [Unknown]
  - Influenza [Unknown]
  - Cardiac disorder [Unknown]
